FAERS Safety Report 16679490 (Version 1)
Quarter: 2019Q3

REPORT INFORMATION
  Report Type: Spontaneous
  Country: US (occurrence: US)
  Receive Date: 20190807
  Receipt Date: 20190807
  Transmission Date: 20191004
  Serious: Yes (Other)
  Sender: FDA-Public Use
  Company Number: PHHY2019US180012

PATIENT

DRUGS (1)
  1. TRAMETINIB [Suspect]
     Active Substance: TRAMETINIB
     Indication: ACUTE MYELOID LEUKAEMIA REFRACTORY
     Dosage: 2 MG, QD
     Route: 048

REACTIONS (3)
  - Fatigue [Recovered/Resolved]
  - Product use in unapproved indication [Unknown]
  - Toxicity to various agents [Recovered/Resolved]
